FAERS Safety Report 5770568-1 (Version None)
Quarter: 2008Q2

REPORT INFORMATION
  Report Type: 
  Country: None (occurrence: None)
  Receive Date: 20080613
  Receipt Date: 20080502
  Transmission Date: 20081010
  Serious: No
  Sender: FDA-Public Use
  Company Number: US-ABBOTT-08P-163-0450280-00

PATIENT
  Sex: Male
  Weight: 90.9 kg

DRUGS (5)
  1. HUMIRA [Suspect]
     Indication: PSORIATIC ARTHROPATHY
     Route: 058
     Dates: start: 20080101
  2. METHOTREXATE [Concomitant]
     Indication: PSORIATIC ARTHROPATHY
     Dosage: FIVE 2.5 MG TABS EVERY THURSDAY
     Dates: start: 20080101
  3. PRINZIDE [Concomitant]
     Indication: HYPERTENSION
     Dosage: 20 MG/12.5 MG DAILY
     Route: 048
  4. SIMVASTATIN [Concomitant]
     Indication: BLOOD CHOLESTEROL INCREASED
     Route: 048
     Dates: start: 20060101
  5. OMEPRAZOLE MAGNESIUM [Concomitant]
     Indication: DYSPEPSIA
     Route: 048
     Dates: start: 20070401

REACTIONS (1)
  - ACCIDENTAL EXPOSURE [None]
